FAERS Safety Report 6140943-4 (Version None)
Quarter: 2009Q2

REPORT INFORMATION
  Report Type: 
  Country: None (occurrence: None)
  Receive Date: 20090401
  Receipt Date: 20090401
  Transmission Date: 20091009
  Serious: Yes (Other)
  Sender: FDA-Public Use
  Company Number: None

PATIENT
  Sex: Male
  Weight: 96.36 kg

DRUGS (8)
  1. NIFEDIPINE [Suspect]
     Dosage: 30MG TABLET 30 MG QD ORAL
     Route: 048
     Dates: start: 20090324, end: 20090330
  2. ATENOLOL [Concomitant]
  3. IMODIUM A.D. (LOPERAMIDE HCL) [Concomitant]
  4. INDOMETHACIN [Concomitant]
  5. LISINOPRIL [Concomitant]
  6. MCI (MULTIVITAMINS) [Concomitant]
  7. SIMVASTATIN [Concomitant]
  8. TOPICAL GELS [Concomitant]

REACTIONS (1)
  - OEDEMA [None]
